FAERS Safety Report 12621895 (Version 1)
Quarter: 2016Q3

REPORT INFORMATION
  Report Type: Spontaneous
  Country: JP (occurrence: TW)
  Receive Date: 20160804
  Receipt Date: 20160804
  Transmission Date: 20161109
  Serious: Yes (Disabling)
  Sender: FDA-Public Use
  Company Number: TW-B.I. PHARMACEUTICALS,INC./RIDGEFIELD-2016-BI-49464NB

PATIENT
  Age: 86 Year
  Sex: Male

DRUGS (1)
  1. PRAZAXA [Suspect]
     Active Substance: DABIGATRAN ETEXILATE MESYLATE
     Indication: ATRIAL FIBRILLATION
     Dosage: 220 MG
     Route: 048

REACTIONS (2)
  - Splenic infarction [Unknown]
  - Renal infarct [Unknown]
